FAERS Safety Report 15655728 (Version 1)
Quarter: 2018Q4

REPORT INFORMATION
  Report Type: Spontaneous
  Country: IT (occurrence: IT)
  Receive Date: 20181126
  Receipt Date: 20181126
  Transmission Date: 20190205
  Serious: Yes (Other)
  Sender: FDA-Public Use
  Company Number: IT-CORDEN PHARMA LATINA S.P.A.-IT-2018COR000142

PATIENT

DRUGS (23)
  1. LAMIVUDINE. [Suspect]
     Active Substance: LAMIVUDINE
     Indication: PROPHYLAXIS
     Dosage: UNK
     Route: 065
  2. DOXORUBICIN [Suspect]
     Active Substance: DOXORUBICIN
     Indication: PLASMA CELL MYELOMA
     Dosage: UNK, 2 CYCLES
     Route: 065
     Dates: start: 20100616, end: 20100803
  3. LENALIDOMIDE [Suspect]
     Active Substance: LENALIDOMIDE
     Dosage: UNK, 17 CYCLES
     Route: 065
     Dates: start: 20120523, end: 20131116
  4. MELPHALAN. [Suspect]
     Active Substance: MELPHALAN
     Indication: PLASMA CELL MYELOMA
     Dosage: UNK, 6 CYCLES
     Route: 065
     Dates: start: 20090115, end: 20090604
  5. BENDAMUSTINE [Suspect]
     Active Substance: BENDAMUSTINE
     Indication: PLASMA CELL MYELOMA
     Dosage: UNK, 5 CYCLES
     Route: 065
     Dates: start: 20140115, end: 20140520
  6. DEXAMETHASONE. [Suspect]
     Active Substance: DEXAMETHASONE
     Dosage: UNK, 17 CYCLES
     Route: 065
     Dates: start: 20120523, end: 20131116
  7. DEXAMETHASONE. [Suspect]
     Active Substance: DEXAMETHASONE
     Dosage: UNK, 2 CYCLES
     Route: 065
     Dates: start: 20100616, end: 20100803
  8. DEXAMETHASONE. [Suspect]
     Active Substance: DEXAMETHASONE
     Dosage: UNK, 7 CYCLES
     Route: 065
     Dates: start: 20151115, end: 20160225
  9. BORTEZOMIB. [Suspect]
     Active Substance: BORTEZOMIB
     Dosage: UNK, 2 CYCLES
     Route: 065
     Dates: start: 20100616, end: 20100803
  10. DOXORUBICIN [Suspect]
     Active Substance: DOXORUBICIN
     Dosage: UNK, 4 CYCLES
     Route: 065
     Dates: start: 20100115, end: 20100416
  11. PREDNISONE. [Suspect]
     Active Substance: PREDNISONE
     Indication: PLASMA CELL MYELOMA
     Dosage: UNK, 1 CYCLE
     Route: 065
     Dates: start: 20140625
  12. BORTEZOMIB. [Suspect]
     Active Substance: BORTEZOMIB
     Dosage: UNK, 4 CYCLES
     Route: 065
     Dates: start: 20100115, end: 20100406
  13. CYCLOPHOSPHAMIDE. [Suspect]
     Active Substance: CYCLOPHOSPHAMIDE
     Indication: PLASMA CELL MYELOMA
     Dosage: UNK, 1 CYCLE
     Route: 065
     Dates: start: 20081121
  14. MELPHALAN. [Suspect]
     Active Substance: MELPHALAN
     Dosage: UNK, 1 CYCLES
     Route: 065
     Dates: start: 20140625
  15. DEXAMETHASONE. [Suspect]
     Active Substance: DEXAMETHASONE
     Dosage: UNK, 3 CYCLES
     Route: 065
     Dates: start: 20091030, end: 20091211
  16. CYCLOPHOSPHAMIDE. [Suspect]
     Active Substance: CYCLOPHOSPHAMIDE
     Dosage: UNK, 2 CYCLES
     Route: 065
     Dates: start: 20100616, end: 20100803
  17. LENALIDOMIDE [Suspect]
     Active Substance: LENALIDOMIDE
     Indication: PLASMA CELL MYELOMA
     Dosage: UNK, 4 CYCLES
     Route: 065
     Dates: start: 20080701, end: 20080923
  18. CARFILZOMIB [Suspect]
     Active Substance: CARFILZOMIB
     Indication: PLASMA CELL MYELOMA
     Dosage: UNK,  7 CYCLES
     Route: 065
     Dates: start: 20151115, end: 20160225
  19. BORTEZOMIB. [Suspect]
     Active Substance: BORTEZOMIB
     Indication: PLASMA CELL MYELOMA
     Dosage: UNK, 3 CYCLES
     Route: 065
     Dates: start: 20091030, end: 20091211
  20. ETOPOSIDE. [Suspect]
     Active Substance: ETOPOSIDE
     Indication: PLASMA CELL MYELOMA
     Dosage: UNK, 2 CYCLES
     Route: 065
     Dates: start: 20100616, end: 20100803
  21. DEXAMETHASONE. [Suspect]
     Active Substance: DEXAMETHASONE
     Indication: PLASMA CELL MYELOMA
     Dosage: UNK, 4 CYCLES
     Route: 065
     Dates: start: 20080701, end: 20080923
  22. LENALIDOMIDE [Suspect]
     Active Substance: LENALIDOMIDE
     Dosage: UNK, 6 CYCLES
     Route: 065
     Dates: start: 20090115, end: 20090604
  23. POMALIDOMIDE [Suspect]
     Active Substance: POMALIDOMIDE
     Indication: PLASMA CELL MYELOMA
     Dosage: UNK, 7 CYCLES
     Route: 065
     Dates: start: 20151115, end: 20160225

REACTIONS (4)
  - Folliculitis [Unknown]
  - Mucosal inflammation [Unknown]
  - Bronchitis [Unknown]
  - Hepatitis B reactivation [Unknown]
